FAERS Safety Report 8106602-3 (Version None)
Quarter: 2012Q1

REPORT INFORMATION
  Report Type: 
  Country: None (occurrence: None)
  Receive Date: 20120202
  Receipt Date: 20120124
  Transmission Date: 20120608
  Serious: Yes (Hospitalization, Other)
  Sender: FDA-Public Use
  Company Number: CA-ELI_LILLY_AND_COMPANY-CA201201007046

PATIENT
  Age: 14 Year
  Sex: Male

DRUGS (3)
  1. PROZAC [Suspect]
     Dosage: 20 MG, UNK
     Dates: start: 20120101
  2. PROZAC [Suspect]
     Indication: DEPRESSION
     Dosage: UNK
     Dates: start: 20111201
  3. TRAZODONE HCL [Concomitant]
     Dosage: 50 MG, UNK

REACTIONS (6)
  - RASH [None]
  - DRUG ADMINISTRATION ERROR [None]
  - HOSPITALISATION [None]
  - INTENTIONAL SELF-INJURY [None]
  - AGGRESSION [None]
  - ABNORMAL BEHAVIOUR [None]
